FAERS Safety Report 24561334 (Version 1)
Quarter: 2024Q4

REPORT INFORMATION
  Report Type: Spontaneous
  Country: US (occurrence: US)
  Receive Date: 20241029
  Receipt Date: 20241029
  Transmission Date: 20250115
  Serious: No
  Sender: PFIZER
  Company Number: US-PFIZER INC-PV202400139372

PATIENT
  Age: 42 Year
  Sex: Male

DRUGS (1)
  1. NURTEC ODT [Suspect]
     Active Substance: RIMEGEPANT SULFATE
     Dosage: ONE ORAL DISINTEGRATING TABLET IN MOUTH EVERY OTHER DAY AS NEEDED MAX 1 TABLET PER 24 HOURS
     Route: 048

REACTIONS (1)
  - Drug ineffective [Unknown]
